FAERS Safety Report 8781207 (Version 9)
Quarter: 2015Q1

REPORT INFORMATION
  Report Type: Spontaneous
  Country: US (occurrence: US)
  Receive Date: 20120913
  Receipt Date: 20150205
  Transmission Date: 20150721
  Serious: Yes (Hospitalization, Other)
  Sender: FDA-Public Use
  Company Number: US-009507513-1209USA001516

PATIENT
  Sex: Female
  Weight: 77.98 kg

DRUGS (7)
  1. FOSAMAX [Suspect]
     Active Substance: ALENDRONATE SODIUM
     Indication: OSTEOPOROSIS
     Dosage: 70 MG, QW
     Route: 048
     Dates: end: 20110622
  2. ALENDRONATE SODIUM. [Suspect]
     Active Substance: ALENDRONATE SODIUM
     Dosage: 70 MG, UNK
     Dates: start: 20090428, end: 20091121
  3. PROTONIX [Concomitant]
     Active Substance: PANTOPRAZOLE SODIUM
     Dosage: UNK
     Dates: start: 2005, end: 2012
  4. FOSAMAX [Suspect]
     Active Substance: ALENDRONATE SODIUM
     Indication: OSTEOPENIA
  5. FOSAMAX [Suspect]
     Active Substance: ALENDRONATE SODIUM
     Indication: OSTEOPENIA
  6. FOSAMAX [Suspect]
     Active Substance: ALENDRONATE SODIUM
     Indication: OSTEOPOROSIS
     Dosage: 70 MG, QW
     Route: 048
     Dates: start: 20051104, end: 200601
  7. BONIVA [Suspect]
     Active Substance: IBANDRONATE SODIUM
     Indication: OSTEOPENIA
     Dosage: 150 MG, UNK
     Route: 048
     Dates: start: 200510, end: 200902

REACTIONS (60)
  - Intramedullary rod insertion [Unknown]
  - Partial lung resection [Unknown]
  - Medical device removal [Unknown]
  - Localised infection [Unknown]
  - Fall [Unknown]
  - Muscle strain [Unknown]
  - Anxiety [Unknown]
  - Depression [Unknown]
  - Acute sinusitis [Unknown]
  - Migraine [Unknown]
  - Tenosynovitis stenosans [Unknown]
  - Arthritis [Unknown]
  - Limb asymmetry [Unknown]
  - Pain in extremity [Unknown]
  - Constipation [Unknown]
  - Femoral neck fracture [Unknown]
  - Packed red blood cell transfusion [Unknown]
  - Medical device removal [Unknown]
  - Central venous catheterisation [Unknown]
  - Osteoarthritis [Unknown]
  - Gallbladder operation [Unknown]
  - Device breakage [Unknown]
  - Open reduction of fracture [Unknown]
  - Tendon rupture [Unknown]
  - Insomnia [Unknown]
  - Bursitis [Unknown]
  - Gastrooesophageal reflux disease [Not Recovered/Not Resolved]
  - Lung neoplasm malignant [Unknown]
  - Fracture nonunion [Unknown]
  - Low turnover osteopathy [Unknown]
  - Repetitive strain injury [Unknown]
  - Laceration [Unknown]
  - Femur fracture [Recovered/Resolved]
  - Wound infection [Unknown]
  - Muscle strain [Unknown]
  - Hypertension [Unknown]
  - Neck pain [Unknown]
  - Back pain [Unknown]
  - Urinary tract infection [Unknown]
  - Device breakage [Unknown]
  - Myalgia [Unknown]
  - Bone graft [Unknown]
  - Rhinitis allergic [Unknown]
  - Oedema [Unknown]
  - Open reduction of fracture [Unknown]
  - Hip arthroplasty [Unknown]
  - Bone graft [Unknown]
  - Pain [Unknown]
  - Fracture nonunion [Unknown]
  - Hypothyroidism [Unknown]
  - Vertigo [Unknown]
  - Renal failure [Unknown]
  - Impaired healing [Not Recovered/Not Resolved]
  - Bone graft [Unknown]
  - Open reduction of fracture [Unknown]
  - Pharyngitis [Unknown]
  - Neuropathy peripheral [Unknown]
  - Weight increased [Unknown]
  - Limb deformity [Unknown]
  - Blood creatinine increased [Unknown]

NARRATIVE: CASE EVENT DATE: 20050907
